FAERS Safety Report 24715462 (Version 2)
Quarter: 2025Q3

REPORT INFORMATION
  Report Type: Spontaneous
  Country: US (occurrence: US)
  Receive Date: 20241210
  Receipt Date: 20250812
  Transmission Date: 20251020
  Serious: No
  Sender: SANOFI AVENTIS
  Company Number: US-SA-2024SA361499

PATIENT
  Age: 69 Year
  Sex: Female

DRUGS (12)
  1. DUPIXENT [Suspect]
     Active Substance: DUPILUMAB
     Indication: Dermatitis atopic
     Dosage: 300 MG, QOW
     Route: 058
     Dates: start: 20240605
  2. GABAPENTIN [Concomitant]
     Active Substance: GABAPENTIN
  3. DICLOFENAC [Concomitant]
     Active Substance: DICLOFENAC
  4. LOSARTAN [Concomitant]
     Active Substance: LOSARTAN
  5. BUDESONIDE [Concomitant]
     Active Substance: BUDESONIDE
  6. ESTRADIOL [Concomitant]
     Active Substance: ESTRADIOL
  7. OMEPRAZOLE [Concomitant]
     Active Substance: OMEPRAZOLE
  8. ATORVASTATIN [Concomitant]
     Active Substance: ATORVASTATIN
  9. PRIMIDONE [Concomitant]
     Active Substance: PRIMIDONE
  10. TACROLIMUS [Concomitant]
     Active Substance: TACROLIMUS
  11. MONTELUKAST [Concomitant]
     Active Substance: MONTELUKAST
  12. ALBUTEROL [Concomitant]
     Active Substance: ALBUTEROL

REACTIONS (2)
  - Skin discolouration [Unknown]
  - Weight decreased [Unknown]

NARRATIVE: CASE EVENT DATE: 20241204
